FAERS Safety Report 24712388 (Version 3)
Quarter: 2024Q4

REPORT INFORMATION
  Report Type: Report from Study
  Country: CA (occurrence: CA)
  Receive Date: 20241209
  Receipt Date: 20241221
  Transmission Date: 20250115
  Serious: Yes (Hospitalization, Other)
  Sender: IPSEN BIOPHARMACEUTICALS, INC.
  Company Number: CA-IPSEN Group, Research and Development-2022-17286

PATIENT
  Age: 76 Year
  Sex: Female

DRUGS (17)
  1. LANREOTIDE ACETATE [Suspect]
     Active Substance: LANREOTIDE ACETATE
     Indication: Gastroenteropancreatic neuroendocrine tumour disease
     Dosage: VIA DEEP SUBCUTANEOUS ROUTE
     Route: 058
     Dates: start: 20210219
  2. LANREOTIDE ACETATE [Suspect]
     Active Substance: LANREOTIDE ACETATE
     Dosage: VIA DEEP SUBCUTANEOUS ROUTE
     Route: 058
  3. LUTETIUM LU-177 [Suspect]
     Active Substance: LUTETIUM LU-177
     Indication: Product used for unknown indication
     Route: 065
  4. DOCUSATE [Concomitant]
     Active Substance: DOCUSATE
  5. MOMETASONE [Concomitant]
     Active Substance: MOMETASONE
  6. POLYETHYLENE GLYCOL 3350 [Concomitant]
     Active Substance: POLYETHYLENE GLYCOL 3350
  7. ALDACTONE [Concomitant]
     Active Substance: SPIRONOLACTONE
  8. PANTOPRAZOLE [Concomitant]
     Active Substance: PANTOPRAZOLE
  9. CITALOPRAM [Concomitant]
     Active Substance: CITALOPRAM
  10. IRON [Concomitant]
     Active Substance: IRON
  11. OXAZEPAM [Concomitant]
     Active Substance: OXAZEPAM
  12. CALCIUM [Concomitant]
     Active Substance: CALCIUM
  13. VITAMIN B1 [Concomitant]
     Active Substance: THIAMINE HYDROCHLORIDE
  14. FUROSEMIDE [Concomitant]
     Active Substance: FUROSEMIDE
  15. AMLODIPINE [Concomitant]
     Active Substance: AMLODIPINE BESYLATE
  16. TYLENOL [Concomitant]
     Active Substance: ACETAMINOPHEN
  17. ATORVASTATIN [Concomitant]
     Active Substance: ATORVASTATIN

REACTIONS (14)
  - Abdominal pain upper [Unknown]
  - Fall [Unknown]
  - Asthenia [Not Recovered/Not Resolved]
  - Loss of consciousness [Unknown]
  - Diarrhoea [Not Recovered/Not Resolved]
  - Dehydration [Not Recovered/Not Resolved]
  - Haemoglobin decreased [Not Recovered/Not Resolved]
  - Swelling [Not Recovered/Not Resolved]
  - Fatigue [Not Recovered/Not Resolved]
  - Pain [Unknown]
  - Contusion [Not Recovered/Not Resolved]
  - Hypertension [Not Recovered/Not Resolved]
  - Diarrhoea [Not Recovered/Not Resolved]
  - Off label use [Unknown]

NARRATIVE: CASE EVENT DATE: 20220601
